FAERS Safety Report 19178787 (Version 1)
Quarter: 2021Q2

REPORT INFORMATION
  Report Type: Spontaneous
  Country: US (occurrence: US)
  Receive Date: 20210421
  Receipt Date: 20210421
  Transmission Date: 20210717
  Serious: No
  Sender: FDA-Public Use
  Company Number: None

PATIENT
  Sex: Female

DRUGS (22)
  1. BENADRYL [Concomitant]
     Active Substance: DIPHENHYDRAMINE HYDROCHLORIDE
  2. DOCUSATE [Concomitant]
     Active Substance: DOCUSATE
  3. LORATADINE. [Concomitant]
     Active Substance: LORATADINE
  4. MULTIVIT [Concomitant]
     Active Substance: VITAMINS
  5. MYCOPHENOLATE MOFETIL. [Concomitant]
     Active Substance: MYCOPHENOLATE MOFETIL
  6. SILDENAFIL. [Concomitant]
     Active Substance: SILDENAFIL
  7. SULFAMETHOXAZOLE/TRIMETHO [Concomitant]
  8. ONDANSETRON [Concomitant]
     Active Substance: ONDANSETRON
  9. SPIRONOLACTONE. [Concomitant]
     Active Substance: SPIRONOLACTONE
  10. PRAZOSIN. [Concomitant]
     Active Substance: PRAZOSIN
  11. SERTRALINE [Concomitant]
     Active Substance: SERTRALINE HYDROCHLORIDE
  12. AMBRISENTAN 10MG TAB [Suspect]
     Active Substance: AMBRISENTAN
     Indication: PULMONARY HYPERTENSION
     Route: 048
  13. CALCIUM CARBONATE. [Concomitant]
     Active Substance: CALCIUM CARBONATE
  14. RANITIDINE. [Concomitant]
     Active Substance: RANITIDINE
  15. BENZONATATE. [Concomitant]
     Active Substance: BENZONATATE
  16. GABAPENTIN. [Concomitant]
     Active Substance: GABAPENTIN
  17. OMEPRAZOLE. [Concomitant]
     Active Substance: OMEPRAZOLE
  18. POTASSIUM CHLORIDE. [Concomitant]
     Active Substance: POTASSIUM CHLORIDE
  19. XARELTO [Concomitant]
     Active Substance: RIVAROXABAN
  20. TORSEMIDE. [Concomitant]
     Active Substance: TORSEMIDE
  21. VITAMIN D [Concomitant]
     Active Substance: VITAMIN D NOS
  22. PROMETHAZINE [Concomitant]
     Active Substance: PROMETHAZINE HYDROCHLORIDE

REACTIONS (2)
  - Fatigue [None]
  - Cardiac operation [None]
